FAERS Safety Report 8348563 (Version 3)
Quarter: 2013Q2

REPORT INFORMATION
  Report Type: Spontaneous
  Country: BE (occurrence: None)
  Receive Date: 20120111
  Receipt Date: 20130528
  Transmission Date: 20140414
  Serious: Yes (Hospitalization)
  Sender: FDA-Public Use
  Company Number: BE-024449

PATIENT
  Age: 74 Year
  Sex: Male
  Weight: 110 kg

DRUGS (2)
  1. CHLORAMBUCIL [Suspect]
     Indication: CHRONIC LYMPHOCYTIC LEUKAEMIA
     Dosage: 10 MGM2 DAYS 1-7 EVERY 28 DAYS
     Route: 048
     Dates: start: 20101122
  2. OFATUMUMAB [Suspect]
     Indication: CHRONIC LYMPHOCYTIC LEUKAEMIA
     Dosage: 300MG AT DAY 1, 1000MG AT DAY 8 FOLLOWED BY 1000MG EVERY 28 DAYS
     Route: 042
     Dates: start: 20101122

REACTIONS (1)
  - GASTROINTESTINAL HAEMORRHAGE [None]
